FAERS Safety Report 13110095 (Version 1)
Quarter: 2017Q1

REPORT INFORMATION
  Report Type: Spontaneous
  Country: US (occurrence: US)
  Receive Date: 20170112
  Receipt Date: 20170112
  Transmission Date: 20170428
  Serious: Yes (Hospitalization)
  Sender: FDA-Public Use
  Company Number: US-ROCHE-1338900

PATIENT
  Age: 54 Year
  Sex: Male
  Weight: 92 kg

DRUGS (8)
  1. EPINEPHRINE. [Concomitant]
     Active Substance: EPINEPHRINE
     Route: 042
  2. ATROPINE. [Concomitant]
     Active Substance: ATROPINE
     Indication: RESUSCITATION
     Dosage: 1 MG , 1 IN ONCE
     Route: 065
  3. NORMAL SALINE [Concomitant]
     Active Substance: SODIUM CHLORIDE
     Indication: RESUSCITATION
     Route: 065
  4. SODIUM BICARBONATE. [Concomitant]
     Active Substance: SODIUM BICARBONATE
     Dosage: 2 DOSES
     Route: 065
  5. ALTEPLASE [Suspect]
     Active Substance: ALTEPLASE
     Indication: PULMONARY EMBOLISM
     Route: 040
  6. EPINEPHRINE. [Concomitant]
     Active Substance: EPINEPHRINE
     Indication: RESUSCITATION
     Dosage: ONE DOSE
     Route: 065
  7. NOREPINEPHRINE [Concomitant]
     Active Substance: NOREPINEPHRINE\NOREPINEPHRINE BITARTRATE
     Indication: RESUSCITATION
     Dosage: TITRATED TO 20 MCG/MIN
     Route: 065
  8. NOREPINEPHRINE [Concomitant]
     Active Substance: NOREPINEPHRINE\NOREPINEPHRINE BITARTRATE
     Dosage: TITRATED TO 30 MCG/MIN
     Route: 065

REACTIONS (1)
  - Lower gastrointestinal haemorrhage [Not Recovered/Not Resolved]
